FAERS Safety Report 6284559-8 (Version None)
Quarter: 2009Q3

REPORT INFORMATION
  Report Type: 
  Country: None (occurrence: None)
  Receive Date: 20090727
  Receipt Date: 20090623
  Transmission Date: 20100115
  Serious: No
  Sender: FDA-Public Use
  Company Number: US-BAYER-200924559NA

PATIENT
  Age: 66 Year
  Sex: Male
  Weight: 90 kg

DRUGS (4)
  1. CAMPATH [Suspect]
     Indication: CHRONIC LYMPHOCYTIC LEUKAEMIA
     Dosage: AS USED: 30 MG
     Route: 042
     Dates: end: 20090605
  2. CAMPATH [Suspect]
     Dosage: AS USED: 30 MG
     Route: 042
     Dates: start: 20090622
  3. VALTREX [Concomitant]
     Indication: PREMEDICATION
  4. BACTRIM [Concomitant]
     Indication: PREMEDICATION
     Dates: start: 20090622

REACTIONS (3)
  - ANAEMIA [None]
  - NEUTROPENIA [None]
  - NO ADVERSE EVENT [None]
